FAERS Safety Report 7354755-7 (Version None)
Quarter: 2011Q1

REPORT INFORMATION
  Report Type: 
  Country: None (occurrence: None)
  Receive Date: 20110302
  Receipt Date: 20110216
  Transmission Date: 20110831
  Serious: Yes (Hospitalization, Other)
  Sender: FDA-Public Use
  Company Number: 2011PROUSA00221

PATIENT
  Age: 86 Year
  Sex: Male

DRUGS (3)
  1. PROVENGE [Suspect]
  2. PROVENGE [Suspect]
     Indication: PROSTATE CANCER METASTATIC
     Dosage: 250 ML, SINGLE, INTRAVENOUS
     Route: 042
     Dates: start: 20110113, end: 20110113
  3. PROVENGE [Suspect]
     Indication: PROSTATE CANCER METASTATIC
     Dosage: 250 ML, SINGLE, INTRAVENOUS
     Route: 042
     Dates: start: 20110127, end: 20110127

REACTIONS (9)
  - EJECTION FRACTION DECREASED [None]
  - MALAISE [None]
  - CARDIAC FAILURE CONGESTIVE [None]
  - HYPONATRAEMIA [None]
  - CHILLS [None]
  - URINARY TRACT INFECTION [None]
  - PRODUCT STERILITY LACKING [None]
  - KIDNEY INFECTION [None]
  - PYREXIA [None]
